FAERS Safety Report 18403484 (Version 1)
Quarter: 2020Q4

REPORT INFORMATION
  Report Type: Spontaneous
  Country: US (occurrence: US)
  Receive Date: 20201019
  Receipt Date: 20201019
  Transmission Date: 20210114
  Serious: Yes (Hospitalization)
  Sender: FDA-Public Use
  Company Number: None

PATIENT
  Sex: Female

DRUGS (1)
  1. DANAZOL 200MG TEVA PHARMACEUTICALS USA [Suspect]
     Active Substance: DANAZOL
     Indication: REFRACTORY CYTOPENIA WITH MULTILINEAGE DYSPLASIA
     Route: 048
     Dates: start: 20170426

REACTIONS (2)
  - Chest pain [None]
  - Blood glucose decreased [None]
